FAERS Safety Report 5385428-8 (Version None)
Quarter: 2007Q3

REPORT INFORMATION
  Report Type: 
  Country: None (occurrence: None)
  Receive Date: 20070706
  Receipt Date: 20070706
  Transmission Date: 20080115
  Serious: Yes (Hospitalization)
  Sender: FDA-Public Use
  Company Number: None

PATIENT
  Age: 60 Year
  Sex: Male
  Weight: 117.028 kg

DRUGS (2)
  1. WARFARIN SODIUM [Suspect]
     Indication: ATRIAL FIBRILLATION
     Dosage: 5MG QPM PO
     Route: 048
     Dates: start: 20070519, end: 20070530
  2. ENOXAPARIN SODIUM [Suspect]
     Indication: DRUG THERAPY
     Dosage: 120MG Q12HR SC
     Route: 058
     Dates: start: 20070518, end: 20070525

REACTIONS (3)
  - DRUG ADMINISTRATION ERROR [None]
  - DRUG DOSE OMISSION [None]
  - INTERNATIONAL NORMALISED RATIO FLUCTUATION [None]
